FAERS Safety Report 5485773-1 (Version None)
Quarter: 2007Q4

REPORT INFORMATION
  Report Type: 
  Country: None (occurrence: None)
  Receive Date: 20071015
  Receipt Date: 20071009
  Transmission Date: 20080405
  Serious: Yes (Life-Threatening, Hospitalization)
  Sender: FDA-Public Use
  Company Number: JP-MERCK-0708USA02144

PATIENT
  Age: 78 Year
  Sex: Male
  Weight: 44 kg

DRUGS (20)
  1. HYZAAR [Suspect]
     Indication: HYPERTENSION
     Route: 048
     Dates: start: 20070710, end: 20070713
  2. AMLODIPINE [Concomitant]
     Route: 048
     Dates: end: 20070714
  3. HYGROTON [Concomitant]
     Route: 048
  4. PRINIVIL [Concomitant]
     Route: 048
  5. PAXIL [Concomitant]
     Route: 048
  6. ALPRAZOLAM [Concomitant]
     Route: 048
  7. ALACEPRIL [Concomitant]
     Route: 048
  8. CANDESARTAN CILEXETIL [Concomitant]
     Route: 048
  9. BLADDERON [Concomitant]
     Route: 048
  10. TRANCOLON [Concomitant]
     Route: 048
  11. TROXIPIDE [Concomitant]
     Route: 048
  12. CINAL [Concomitant]
     Route: 048
  13. NEUROVITAN [Concomitant]
     Route: 048
  14. JUVELA [Concomitant]
     Route: 048
  15. AMBROXOL [Concomitant]
     Route: 048
  16. MECOBALAMIN [Concomitant]
     Route: 048
  17. SORELMON [Concomitant]
     Route: 048
  18. ADALAT [Concomitant]
     Route: 048
  19. HARNAL [Concomitant]
     Route: 048
  20. UBRETID [Concomitant]
     Route: 048

REACTIONS (2)
  - HYPOKALAEMIA [None]
  - INAPPROPRIATE ANTIDIURETIC HORMONE SECRETION [None]
